FAERS Safety Report 6239290-1 (Version None)
Quarter: 2009Q2

REPORT INFORMATION
  Report Type: 
  Country: None (occurrence: None)
  Receive Date: 20090622
  Receipt Date: 20090615
  Transmission Date: 20091009
  Serious: Yes (Hospitalization, Other)
  Sender: FDA-Public Use
  Company Number: FR-AMGEN-QUU351517

PATIENT
  Sex: Female

DRUGS (8)
  1. ARANESP [Suspect]
     Indication: MYELODYSPLASTIC SYNDROME
     Route: 042
     Dates: start: 20080801
  2. COAPROVEL [Concomitant]
  3. NICARDIPINE HCL [Concomitant]
  4. DIANTALVIC [Concomitant]
  5. ZOCOR [Concomitant]
  6. CHONDROSULF [Concomitant]
  7. ZOLPIDEM TARTRATE [Concomitant]
  8. NEBIVOLOL HYDROCHLORIDE [Concomitant]

REACTIONS (2)
  - PRURITUS GENERALISED [None]
  - RASH ERYTHEMATOUS [None]
